FAERS Safety Report 5499319-5 (Version None)
Quarter: 2007Q4

REPORT INFORMATION
  Report Type: 
  Country: None (occurrence: None)
  Receive Date: 20071024
  Receipt Date: 20071011
  Transmission Date: 20080405
  Serious: Yes (Hospitalization, Other)
  Sender: FDA-Public Use
  Company Number: 2007S1009789

PATIENT

DRUGS (5)
  1. WARFARIN SODIUM [Suspect]
     Indication: HEART VALVE REPLACEMENT
     Dosage: 5 MG; TABLET; ORAL
     Route: 048
     Dates: start: 19930101
  2. ASPIRIN [Suspect]
     Indication: CORONARY ARTERY DISEASE
     Dosage: 81 MG; EVERY OTHER DAY
     Route: 048
  3. DIABETA/00145301/ (GLIBENCLAMIDE) [Concomitant]
  4. NORVASC/00972401/ (AMLODIPINE) [Concomitant]
  5. TYLENOL WITH CONDEINE NO. 3 (PANADEINE CO) [Concomitant]

REACTIONS (3)
  - HAEMOGLOBIN DECREASED [None]
  - HAEMORRHAGE [None]
  - RECTAL HAEMORRHAGE [None]
